FAERS Safety Report 9605170 (Version 1)
Quarter: 2013Q4

REPORT INFORMATION
  Report Type: Spontaneous
  Country: DE (occurrence: DE)
  Receive Date: 20131008
  Receipt Date: 20131008
  Transmission Date: 20140711
  Serious: Yes (Hospitalization)
  Sender: FDA-Public Use
  Company Number: DE-TEVA-430643GER

PATIENT
  Age: 50 Year
  Sex: Male

DRUGS (2)
  1. AMOXICILLIN [Suspect]
     Indication: INFECTED BITES
     Dosage: 2000 MILLIGRAM DAILY;
     Route: 048
     Dates: start: 20130925, end: 20130925
  2. AMOXICILIN [Suspect]
     Dosage: 3000 MILLIGRAM DAILY;
     Route: 048
     Dates: start: 20130926, end: 20130926

REACTIONS (4)
  - White blood cell count increased [Unknown]
  - Diarrhoea haemorrhagic [Not Recovered/Not Resolved]
  - Pyrexia [Recovered/Resolved]
  - Nausea [Unknown]
